FAERS Safety Report 18250014 (Version 1)
Quarter: 2020Q3

REPORT INFORMATION
  Report Type: Report from Study
  Country: GT (occurrence: GT)
  Receive Date: 20200909
  Receipt Date: 20200909
  Transmission Date: 20201103
  Serious: Yes (Life-Threatening, Hospitalization, Disabling)
  Sender: FDA-Public Use
  Company Number: GT-JNJFOC-20200842353

PATIENT
  Age: 26 Year
  Sex: Male
  Weight: 95 kg

DRUGS (5)
  1. SECUKINUMAB. [Suspect]
     Active Substance: SECUKINUMAB
     Indication: PSORIASIS
     Route: 058
     Dates: start: 20170313
  2. SECUKINUMAB. [Suspect]
     Active Substance: SECUKINUMAB
     Route: 058
     Dates: start: 20180115
  3. STELARA [Suspect]
     Active Substance: USTEKINUMAB
     Indication: PSORIASIS
     Route: 058
     Dates: start: 20170313
  4. SECUKINUMAB. [Suspect]
     Active Substance: SECUKINUMAB
     Route: 058
     Dates: start: 20170508
  5. DICLOFENAC [Concomitant]
     Active Substance: DICLOFENAC

REACTIONS (4)
  - Gun shot wound [Recovered/Resolved with Sequelae]
  - Spinal column injury [Recovered/Resolved with Sequelae]
  - Sensory disturbance [Recovered/Resolved with Sequelae]
  - Movement disorder [Recovered/Resolved with Sequelae]

NARRATIVE: CASE EVENT DATE: 20170519
